FAERS Safety Report 9625181 (Version 4)
Quarter: 2014Q1

REPORT INFORMATION
  Report Type: Report from Study
  Country: JP (occurrence: JP)
  Receive Date: 20131016
  Receipt Date: 20140217
  Transmission Date: 20141002
  Serious: Yes (Other)
  Sender: FDA-Public Use
  Company Number: JP-ROCHE-1289717

PATIENT
  Age: 39 Year
  Sex: Female
  Weight: 47 kg

DRUGS (11)
  1. OMALIZUMAB [Suspect]
     Indication: ASTHMA
     Route: 065
     Dates: start: 20120919, end: 20120919
  2. PRANLUKAST [Concomitant]
  3. XYZAL [Concomitant]
  4. MUCOSTA [Concomitant]
  5. MALFA [Concomitant]
  6. ADOAIR [Concomitant]
  7. ONON [Concomitant]
  8. UNIPHYLLIN [Concomitant]
  9. LANSOPRAZOLE [Concomitant]
  10. ONBREZ [Concomitant]
     Dosage: INHALATION POWDER
     Route: 065
  11. ALESION [Concomitant]

REACTIONS (4)
  - Erythema multiforme [Recovered/Resolved]
  - Urticaria [Recovered/Resolved]
  - Diarrhoea [Recovering/Resolving]
  - Nausea [Recovered/Resolved]
